FAERS Safety Report 24904471 (Version 1)
Quarter: 2025Q1

REPORT INFORMATION
  Report Type: Spontaneous
  Country: US (occurrence: US)
  Receive Date: 20250130
  Receipt Date: 20250130
  Transmission Date: 20250409
  Serious: Yes (Other)
  Sender: ABBVIE
  Company Number: US-ABBVIE-6107247

PATIENT
  Sex: Male

DRUGS (1)
  1. IMBRUVICA [Suspect]
     Active Substance: IBRUTINIB
     Indication: Chronic lymphocytic leukaemia
     Route: 048
     Dates: start: 2019

REACTIONS (8)
  - Knee operation [Unknown]
  - Muscle spasms [Unknown]
  - Hypertension [Recovering/Resolving]
  - Rash [Recovering/Resolving]
  - Tooth fracture [Unknown]
  - Muscle rupture [Unknown]
  - Shoulder operation [Unknown]
  - Rotator cuff syndrome [Unknown]
